FAERS Safety Report 16792339 (Version 2)
Quarter: 2020Q1

REPORT INFORMATION
  Report Type: Spontaneous
  Country: US (occurrence: US)
  Receive Date: 20190910
  Receipt Date: 20200123
  Transmission Date: 20200409
  Serious: No
  Sender: FDA-Public Use
  Company Number: PHEH2019US036274

PATIENT
  Age: 2 Year
  Sex: Male

DRUGS (1)
  1. ILARIS [Suspect]
     Active Substance: CANAKINUMAB
     Indication: JUVENILE IDIOPATHIC ARTHRITIS
     Dosage: 75 MG(EVERY 8 WEEKS)
     Route: 058
     Dates: start: 20190701

REACTIONS (2)
  - Incorrect product administration duration [Unknown]
  - Skin abrasion [Unknown]

NARRATIVE: CASE EVENT DATE: 20190701
